FAERS Safety Report 19040842 (Version 1)
Quarter: 2021Q1

REPORT INFORMATION
  Report Type: Spontaneous
  Country: US (occurrence: US)
  Receive Date: 20210323
  Receipt Date: 20210323
  Transmission Date: 20210420
  Serious: No
  Sender: FDA-Public Use
  Company Number: US-SA-2021SA095649

PATIENT
  Age: 60 Year
  Sex: Female

DRUGS (15)
  1. IRON [Concomitant]
     Active Substance: IRON
  2. ALBUTEROL [SALBUTAMOL] [Concomitant]
     Active Substance: ALBUTEROL
  3. CALCIUM CARBONATE. [Concomitant]
     Active Substance: CALCIUM CARBONATE
  4. MG [MAGNESIUM] [Concomitant]
     Active Substance: MAGNESIUM
  5. DUPIXENT [Suspect]
     Active Substance: DUPILUMAB
     Indication: ASTHMA
     Route: 058
     Dates: start: 202003
  6. ESTRADIOL. [Concomitant]
     Active Substance: ESTRADIOL
  7. CURCUMIN [Concomitant]
     Active Substance: CURCUMIN
  8. NAPROXEN. [Concomitant]
     Active Substance: NAPROXEN
  9. BENADRYL [ACRIVASTINE] [Concomitant]
     Active Substance: ACRIVASTINE
  10. SERTRALINE [Concomitant]
     Active Substance: SERTRALINE HYDROCHLORIDE
  11. ADVAIR HFA [Concomitant]
     Active Substance: FLUTICASONE PROPIONATE\SALMETEROL XINAFOATE
     Indication: ASTHMA
  12. AZELASTINE;FLUTICASONE [Concomitant]
     Active Substance: AZELASTINE HYDROCHLORIDE\FLUTICASONE PROPIONATE
  13. LORATADINE. [Concomitant]
     Active Substance: LORATADINE
  14. MONTELUKAST SODIUM. [Concomitant]
     Active Substance: MONTELUKAST SODIUM
  15. VITAMIN D3 [Concomitant]
     Active Substance: CHOLECALCIFEROL

REACTIONS (2)
  - Injection site rash [Unknown]
  - Product use issue [Unknown]

NARRATIVE: CASE EVENT DATE: 2020
